FAERS Safety Report 25104947 (Version 1)
Quarter: 2025Q1

REPORT INFORMATION
  Report Type: Spontaneous
  Country: US (occurrence: US)
  Receive Date: 20250321
  Receipt Date: 20250321
  Transmission Date: 20250409
  Serious: Yes (Other)
  Sender: GRIFOLS
  Company Number: US-IGSA-BIG0033702

PATIENT
  Age: 50 Year
  Sex: Female

DRUGS (3)
  1. XEMBIFY [Suspect]
     Active Substance: HUMAN IMMUNOGLOBULIN G
     Indication: Hypogammaglobulinaemia
     Dosage: 18 GRAM, Q.2WK.
     Route: 058
     Dates: start: 20250307, end: 20250307
  2. XEMBIFY [Suspect]
     Active Substance: HUMAN IMMUNOGLOBULIN G
     Dosage: 18 GRAM, Q.2WK.
     Route: 058
     Dates: start: 20250307, end: 20250307
  3. XEMBIFY [Suspect]
     Active Substance: HUMAN IMMUNOGLOBULIN G
     Dosage: 18 GRAM, Q.2WK.
     Route: 058
     Dates: start: 20240410

REACTIONS (5)
  - Infusion site pruritus [Unknown]
  - Infusion site erythema [Unknown]
  - Infusion site swelling [Unknown]
  - Infusion site rash [Unknown]
  - Skin induration [Unknown]

NARRATIVE: CASE EVENT DATE: 20250307
